FAERS Safety Report 6132653-4 (Version None)
Quarter: 2009Q1

REPORT INFORMATION
  Report Type: 
  Country: None (occurrence: None)
  Receive Date: 20090324
  Receipt Date: 20090314
  Transmission Date: 20090719
  Serious: Yes (Other)
  Sender: FDA-Public Use
  Company Number: 2009US000795

PATIENT
  Age: 64 Year
  Sex: Male

DRUGS (11)
  1. LEXISCAN [Suspect]
     Indication: SCAN MYOCARDIAL PERFUSION
     Dosage: 0.4 MG, UID/QD, IV BOLUS
     Route: 040
     Dates: start: 20090202, end: 20090202
  2. ASPIRIN [Concomitant]
  3. LIPITOR [Concomitant]
  4. COREG [Concomitant]
  5. ENALAPRIL MALEATE [Concomitant]
  6. NIASPAN [Concomitant]
  7. LEVEMIR [Concomitant]
  8. PLAVIX [Concomitant]
  9. ALDACTONE (POTASSIUM CANRENOATE) [Concomitant]
  10. LASIX [Concomitant]
  11. EFFEXOR [Concomitant]

REACTIONS (1)
  - CATATONIA [None]
